FAERS Safety Report 22254904 (Version 1)
Quarter: 2023Q2

REPORT INFORMATION
  Report Type: Spontaneous
  Country: FR (occurrence: FR)
  Receive Date: 20230426
  Receipt Date: 20230426
  Transmission Date: 20230722
  Serious: Yes (Other)
  Sender: FDA-Public Use
  Company Number: None

PATIENT
  Age: 52 Year
  Sex: Female

DRUGS (2)
  1. DOXORUBICIN [Suspect]
     Active Substance: DOXORUBICIN
     Indication: Breast cancer
     Dosage: START DATE: 2022
     Route: 042
  2. KEYTRUDA [Suspect]
     Active Substance: PEMBROLIZUMAB
     Indication: Breast cancer
     Route: 042
     Dates: start: 20220822

REACTIONS (4)
  - Troponin T increased [Unknown]
  - Ventricular hypokinesia [Unknown]
  - Cardiac dysfunction [Unknown]
  - Troponin I increased [Unknown]

NARRATIVE: CASE EVENT DATE: 20220828
